FAERS Safety Report 8845849 (Version 1)
Quarter: 2012Q4

REPORT INFORMATION
  Report Type: 
  Country: US (occurrence: US)
  Receive Date: 20121017
  Receipt Date: 20121017
  Transmission Date: 20130627
  Serious: Yes (Other)
  Sender: FDA-Public Use
  Company Number: US-ROCHE-1144592

PATIENT
  Sex: Female

DRUGS (9)
  1. NUTROPIN [Suspect]
     Indication: GROWTH HORMONE DEFICIENCY
     Dosage: 0.66 cc
     Route: 058
  2. NUTROPIN [Suspect]
     Indication: HYPOTHYROIDISM
  3. PRINIVIL [Concomitant]
     Route: 065
  4. SYNTHROID [Concomitant]
     Route: 065
  5. TRI-EST [Concomitant]
     Dosage: 1.5/P-250/T-0.25 one half troche
     Route: 065
  6. PRILOSEC [Concomitant]
     Route: 065
  7. SPIRONOLACTONE [Concomitant]
     Route: 048
  8. GLUCOPHAGE XR [Concomitant]
     Route: 065
  9. BENTYL [Concomitant]
     Route: 048

REACTIONS (7)
  - Appendicitis [Unknown]
  - Umbilical hernia [Unknown]
  - Change of bowel habit [Unknown]
  - Polyp [Unknown]
  - Adhesion [Unknown]
  - Pain [Unknown]
  - Abdominal pain lower [Unknown]
